FAERS Safety Report 21382420 (Version 9)
Quarter: 2022Q4

REPORT INFORMATION
  Report Type: Report from Study
  Country: CN (occurrence: None)
  Receive Date: 20220927
  Receipt Date: 20221227
  Transmission Date: 20230113
  Serious: Yes (Hospitalization)
  Sender: FDA-Public Use
  Company Number: CN-ROCHE-3185505

PATIENT
  Age: 53 Year
  Sex: Female
  Weight: 59 kg

DRUGS (19)
  1. ATEZOLIZUMAB [Suspect]
     Active Substance: ATEZOLIZUMAB
     Indication: Intestinal adenocarcinoma
     Dosage: LAST STUDY DRUG ADMINISTERED PRIOR AE WAS 1200 MG. START DATE OF MOST RECENT DOSE OF STUDY DRUG PRIO
     Route: 041
     Dates: start: 20220818
  2. TIRAGOLUMAB [Suspect]
     Active Substance: TIRAGOLUMAB
     Indication: Intestinal adenocarcinoma
     Dosage: LAST DOSE OF STUDY DRUG ADMINISTERED PRIOR AE WAS 600 MG. START DATE OF MOST RECENT DOSE OF STUDY DR
     Route: 042
     Dates: start: 20220818
  3. CAPECITABINE [Suspect]
     Active Substance: CAPECITABINE
     Indication: Intestinal adenocarcinoma
     Dosage: ON DAYS 1-14 OF EACH 21 DAY CYCLE. LAST DOSE OF STUDY DRUG ADMINISTERED PRIOR AE WAS 3000 MG. START
     Route: 048
     Dates: start: 20220818
  4. OXALIPLATIN [Suspect]
     Active Substance: OXALIPLATIN
     Indication: Intestinal adenocarcinoma
     Dosage: LAST DOSE OF STUDY DRUG ADMINISTERED PRIOR AE WAS 205 MG. START DATE OF MOST RECENT DOSE OF STUDY DR
     Route: 042
     Dates: start: 20220818
  5. PACLITAXEL [Concomitant]
     Active Substance: PACLITAXEL
     Indication: Neoplasm malignant
     Dates: start: 20220924, end: 20220924
  6. FUROSEMIDE [Concomitant]
     Active Substance: FUROSEMIDE
     Indication: Hypoalbuminaemia
     Route: 042
     Dates: start: 20220917, end: 20220918
  7. MOSAPRIDE CITRATE [Concomitant]
     Active Substance: MOSAPRIDE CITRATE
     Route: 048
     Dates: start: 20220907, end: 20220923
  8. COMPOUND AMINO ACID INJECTION (18AA-I) [Concomitant]
     Route: 042
     Dates: start: 20220908, end: 20220913
  9. DIPHENHYDRAMINE HYDROCHLORIDE [Concomitant]
     Active Substance: DIPHENHYDRAMINE HYDROCHLORIDE
     Indication: Prophylaxis of nausea and vomiting
     Route: 030
     Dates: start: 20220913, end: 20220923
  10. DIPHENHYDRAMINE HYDROCHLORIDE [Concomitant]
     Active Substance: DIPHENHYDRAMINE HYDROCHLORIDE
     Indication: Prophylaxis of nausea and vomiting
     Route: 030
     Dates: start: 20220818, end: 20220819
  11. ALBUMIN HUMAN [Concomitant]
     Active Substance: ALBUMIN HUMAN
     Indication: Hypoalbuminaemia
     Route: 042
     Dates: start: 20220913, end: 20220915
  12. ALBUMIN HUMAN [Concomitant]
     Active Substance: ALBUMIN HUMAN
     Route: 042
     Dates: start: 20220915, end: 20220920
  13. ALBUMIN HUMAN [Concomitant]
     Active Substance: ALBUMIN HUMAN
     Route: 042
     Dates: start: 20220920, end: 20220923
  14. MAGNESIUM ISOGLYCYRRHIZINATE [Concomitant]
     Active Substance: MAGNESIUM ISOGLYCYRRHIZINATE
     Route: 042
     Dates: start: 20220923, end: 20220923
  15. TIOPRONIN [Concomitant]
     Active Substance: TIOPRONIN
     Route: 042
     Dates: start: 20220923, end: 20220923
  16. METOCLOPRAMIDE DIHYDROCHLORIDE [Concomitant]
     Indication: Prophylaxis of nausea and vomiting
     Route: 030
     Dates: start: 20220818, end: 20220818
  17. METOCLOPRAMIDE DIHYDROCHLORIDE [Concomitant]
     Indication: Prophylaxis of nausea and vomiting
  18. TROPISETRON HYDROCHLORIDE [Concomitant]
     Active Substance: TROPISETRON HYDROCHLORIDE
     Indication: Prophylaxis of nausea and vomiting
     Route: 042
     Dates: start: 20220818, end: 20220818
  19. TROPISETRON HYDROCHLORIDE [Concomitant]
     Active Substance: TROPISETRON HYDROCHLORIDE
     Indication: Prophylaxis of nausea and vomiting

REACTIONS (1)
  - Gastrointestinal obstruction [Not Recovered/Not Resolved]

NARRATIVE: CASE EVENT DATE: 20220905
